FAERS Safety Report 22246235 (Version 3)
Quarter: 2023Q4

REPORT INFORMATION
  Report Type: Spontaneous
  Country: CA (occurrence: CA)
  Receive Date: 20230424
  Receipt Date: 20231010
  Transmission Date: 20240110
  Serious: Yes (Other)
  Sender: FDA-Public Use
  Company Number: CA-PFIZER INC-202300163720

PATIENT
  Age: 63 Year
  Sex: Female
  Weight: 55.782 kg

DRUGS (2)
  1. METHOTREXATE SODIUM [Suspect]
     Active Substance: METHOTREXATE SODIUM
     Indication: Crohn^s disease
     Dosage: 12.5 MG, WEEKLY INJECTION
     Route: 065
  2. REMICADE [Concomitant]
     Active Substance: INFLIXIMAB
     Dosage: UNK
     Dates: start: 20230403

REACTIONS (3)
  - Ear disorder [Unknown]
  - Off label use [Unknown]
  - Oral infection [Unknown]
